FAERS Safety Report 20278116 (Version 1)
Quarter: 2022Q1

REPORT INFORMATION
  Report Type: Spontaneous
  Country: SA (occurrence: SA)
  Receive Date: 20220103
  Receipt Date: 20220103
  Transmission Date: 20220423
  Serious: Yes (Death, Hospitalization, Other)
  Sender: FDA-Public Use
  Company Number: SA-AMGEN-SAUSP2021206510

PATIENT
  Age: 48 Year
  Sex: Male

DRUGS (3)
  1. FILGRASTIM [Suspect]
     Active Substance: FILGRASTIM
     Indication: Febrile neutropenia
     Dosage: 300 MICROGRAM, DAILY FOR 21 DAYS
     Route: 042
  2. DOCETAXEL [Concomitant]
     Active Substance: DOCETAXEL
  3. FLUCONAZOLE [Concomitant]
     Active Substance: FLUCONAZOLE
     Indication: Febrile neutropenia
     Dosage: 800 MILLIGRAM G LOADING THEN 400 MG DAILY FOR 16 DAYS

REACTIONS (9)
  - Death [Fatal]
  - Pseudomonal sepsis [Unknown]
  - Colitis [Unknown]
  - Large intestinal ulcer [Unknown]
  - Protothecosis [Unknown]
  - Gastrointestinal haemorrhage [Unknown]
  - Gastrointestinal haemorrhage [Unknown]
  - Pneumonia [Unknown]
  - Treatment failure [Unknown]

NARRATIVE: CASE EVENT DATE: 20210409
